FAERS Safety Report 5194944-3 (Version None)
Quarter: 2006Q4

REPORT INFORMATION
  Report Type: 
  Country: None (occurrence: None)
  Receive Date: 20061229
  Receipt Date: 20061025
  Transmission Date: 20070319
  Serious: Yes (Hospitalization)
  Sender: FDA-Public Use
  Company Number: US-BRISTOL-MYERS SQUIBB COMPANY-13555677

PATIENT
  Age: 70 Year
  Sex: Female
  Weight: 108 kg

DRUGS (10)
  1. SPRYCEL [Suspect]
     Indication: ACUTE LYMPHOCYTIC LEUKAEMIA
     Dates: start: 20060701
  2. TRAZODONE HCL [Concomitant]
     Dates: start: 20060501
  3. LIPITOR [Concomitant]
     Dates: start: 20060601
  4. CELEXA [Concomitant]
     Dates: start: 20060601
  5. HYDROCHLOROTHIAZIDE [Concomitant]
     Dates: start: 20060626
  6. TENORMIN [Concomitant]
     Dates: start: 20060626
  7. COZAAR [Concomitant]
     Dates: start: 20060626
  8. COMPAZINE [Concomitant]
     Dates: start: 20060701
  9. TYLENOL + CODEINE NO. 1 [Concomitant]
     Dates: start: 20060801
  10. AMBIEN [Concomitant]
     Dates: start: 20060801

REACTIONS (1)
  - CARDIAC FAILURE CONGESTIVE [None]
